FAERS Safety Report 7861117-2 (Version None)
Quarter: 2011Q4

REPORT INFORMATION
  Report Type: 
  Country: None (occurrence: None)
  Receive Date: 20111027
  Receipt Date: 20111017
  Transmission Date: 20120403
  Serious: Yes (Hospitalization)
  Sender: FDA-Public Use
  Company Number: GB-EISAI INC-E7389-01649-SPO-GB

PATIENT
  Sex: Female

DRUGS (2)
  1. HALAVEN [Suspect]
     Dosage: UNKNOWN
     Route: 041
     Dates: start: 20110930
  2. PHENYTOIN [Suspect]
     Dosage: UNKNOWN
     Dates: start: 20110801

REACTIONS (1)
  - TOXIC EPIDERMAL NECROLYSIS [None]
